FAERS Safety Report 9536762 (Version 2)
Quarter: 2013Q4

REPORT INFORMATION
  Report Type: Spontaneous
  Country: US (occurrence: US)
  Receive Date: 20130919
  Receipt Date: 20131218
  Transmission Date: 20140711
  Serious: Yes (Death)
  Sender: FDA-Public Use
  Company Number: US-SANOFI-AVENTIS-2013SA090516

PATIENT
  Age: 52 Year
  Sex: Female

DRUGS (3)
  1. AMBIEN [Suspect]
     Indication: PRODUCT USED FOR UNKNOWN INDICATION
     Route: 065
  2. AMBRISENTAN [Suspect]
     Indication: PULMONARY HYPERTENSION
     Route: 048
     Dates: start: 20130221, end: 20130713
  3. TREPROSTINOL [Concomitant]
     Route: 065

REACTIONS (1)
  - Cardiac arrest [Fatal]
